FAERS Safety Report 9844697 (Version 2)
Quarter: 2014Q2

REPORT INFORMATION
  Report Type: Spontaneous
  Country: DE (occurrence: None)
  Receive Date: 20140122
  Receipt Date: 20140422
  Transmission Date: 20141212
  Serious: Yes (Hospitalization, Other)
  Sender: FDA-Public Use
  Company Number: AUR-APL-2014-00404

PATIENT
  Age: 83 Year
  Sex: Male
  Weight: 85 kg

DRUGS (3)
  1. CLOPIDOGREL [Suspect]
     Indication: CORONARY ARTERIAL STENT INSERTION
     Dosage: 1DF+75 UNITS NOS
     Route: 048
     Dates: start: 20130527
  2. ELIQUIS [Suspect]
     Indication: CEREBROVASCULAR ACCIDENT
     Dosage: 1 D
     Route: 048
     Dates: start: 20130527, end: 20130628
  3. ASS [Suspect]
     Indication: CORONARY ARTERY DISEASE
     Dosage: 1DF=100-UNITS NOS
     Route: 048

REACTIONS (1)
  - Urinary bladder haemorrhage [None]
